FAERS Safety Report 23958457 (Version 2)
Quarter: 2025Q4

REPORT INFORMATION
  Report Type: Spontaneous
  Country: US (occurrence: US)
  Receive Date: 20240610
  Receipt Date: 20251119
  Transmission Date: 20260118
  Serious: No
  Sender: APELLIS PHARMACEUTICALS
  Company Number: US-APELLIS-2024-APL-0000160

PATIENT

DRUGS (1)
  1. SYFOVRE [Suspect]
     Active Substance: PEGCETACOPLAN
     Indication: Product used for unknown indication
     Route: 031

REACTIONS (1)
  - Eye complication associated with device [Unknown]
